FAERS Safety Report 4868434-9 (Version None)
Quarter: 2005Q4

REPORT INFORMATION
  Report Type: 
  Country: None (occurrence: None)
  Receive Date: 20051229
  Receipt Date: 20050912
  Transmission Date: 20060501
  Serious: Yes (Hospitalization)
  Sender: FDA-Public Use
  Company Number: US-GLAXOSMITHKLINE-A0573770A

PATIENT
  Age: 65 Year
  Sex: Male
  Weight: 90 kg

DRUGS (7)
  1. COMMIT [Suspect]
     Route: 002
     Dates: start: 20050201
  2. TOPROL-XL [Suspect]
     Indication: HYPERTENSION
     Route: 048
     Dates: end: 20050908
  3. HYZAAR [Concomitant]
     Indication: HYPERTENSION
  4. PLAVIX [Concomitant]
     Indication: STENT PLACEMENT
  5. EQUATE ASPIRIN [Concomitant]
  6. LIPITOR [Concomitant]
  7. PROSTATE MEDICATION [Concomitant]
     Indication: PROSTATIC DISORDER

REACTIONS (3)
  - DIZZINESS [None]
  - DRUG ABUSER [None]
  - LOSS OF CONSCIOUSNESS [None]
